FAERS Safety Report 5414999-8 (Version None)
Quarter: 2007Q3

REPORT INFORMATION
  Report Type: 
  Country: None (occurrence: None)
  Receive Date: 20070813
  Receipt Date: 20070813
  Transmission Date: 20080115
  Serious: No
  Sender: FDA-Public Use
  Company Number: None

PATIENT
  Age: 56 Year
  Sex: Male

DRUGS (1)
  1. PRAZOSIN HCL [Suspect]
     Dosage: 5MG EVERY DAY PO
     Route: 048
     Dates: start: 20041130, end: 20070622

REACTIONS (1)
  - HEADACHE [None]
